FAERS Safety Report 9942493 (Version 2)
Quarter: 2014Q1

REPORT INFORMATION
  Report Type: Report from Study
  Country: FR (occurrence: FR)
  Receive Date: 20140303
  Receipt Date: 20140303
  Transmission Date: 20141002
  Serious: Yes (Death)
  Sender: FDA-Public Use
  Company Number: FR-ABBVIE-10P-056-0643831-00

PATIENT
  Sex: Female

DRUGS (1)
  1. NORVIR [Suspect]
     Indication: MATERNAL EXPOSURE TIMING UNSPECIFIED
     Route: 064

REACTIONS (3)
  - Mitochondrial cytopathy [Fatal]
  - Multi-organ failure [Fatal]
  - Foetal exposure during pregnancy [Unknown]
